FAERS Safety Report 4710750-5 (Version None)
Quarter: 2005Q3

REPORT INFORMATION
  Report Type: 
  Country: None (occurrence: None)
  Receive Date: 20050711
  Receipt Date: 20050207
  Transmission Date: 20060218
  Serious: Yes (Other)
  Sender: FDA-Public Use
  Company Number: PHEH2005US01783

PATIENT
  Age: 37 Year
  Sex: Female

DRUGS (7)
  1. PAMIDRONATE DISODIUM [Suspect]
     Indication: METASTASES TO BONE
  2. ZOLEDRONIC ACID [Suspect]
     Indication: METASTASES TO BONE
  3. PACLITAXEL [Concomitant]
  4. RADIOTHERAPY [Concomitant]
     Dosage: LUMBAR
  5. FULVESTRANT [Concomitant]
  6. AC [Concomitant]
  7. ANTIBIOTICS [Concomitant]

REACTIONS (9)
  - BONE DEBRIDEMENT [None]
  - BONE DISORDER [None]
  - ENDODONTIC PROCEDURE [None]
  - EXCESSIVE GRANULATION TISSUE [None]
  - INFECTION [None]
  - ORAL SURGERY [None]
  - OSTEONECROSIS [None]
  - SEQUESTRECTOMY [None]
  - TOOTH EXTRACTION [None]
